FAERS Safety Report 7063145-6 (Version None)
Quarter: 2010Q4

REPORT INFORMATION
  Report Type: 
  Country: None (occurrence: None)
  Receive Date: 20101026
  Receipt Date: 20100505
  Transmission Date: 20110411
  Serious: Yes (Other)
  Sender: FDA-Public Use
  Company Number: US-PFIZER INC-2010058456

PATIENT
  Sex: Female
  Weight: 63.502 kg

DRUGS (1)
  1. LIPITOR [Suspect]
     Indication: BLOOD CHOLESTEROL INCREASED
     Dosage: UNK

REACTIONS (3)
  - ARTHRALGIA [None]
  - MUSCLE SPASMS [None]
  - MYALGIA [None]
